FAERS Safety Report 6130955-9 (Version None)
Quarter: 2009Q1

REPORT INFORMATION
  Report Type: 
  Country: None (occurrence: None)
  Receive Date: 20090325
  Receipt Date: 20090319
  Transmission Date: 20090719
  Serious: Yes (Other)
  Sender: FDA-Public Use
  Company Number: US-ASTRAZENECA-2009UW07135

PATIENT
  Sex: Male

DRUGS (2)
  1. TOPROL-XL [Suspect]
     Indication: HYPERTENSION
     Route: 048
  2. TOPROL-XL [Suspect]
     Route: 048

REACTIONS (3)
  - BLOOD PRESSURE SYSTOLIC INCREASED [None]
  - CARDIAC OPERATION [None]
  - HEART RATE INCREASED [None]
